FAERS Safety Report 5648432-8 (Version None)
Quarter: 2008Q1

REPORT INFORMATION
  Report Type: 
  Country: None (occurrence: None)
  Receive Date: 20080303
  Receipt Date: 20080303
  Transmission Date: 20080703
  Serious: No
  Sender: FDA-Public Use
  Company Number: None

PATIENT
  Age: 48 Year
  Sex: Female
  Weight: 98.4306 kg

DRUGS (2)
  1. LYRICA [Suspect]
     Indication: GLUCOSE TOLERANCE IMPAIRED
     Dosage: 2 DAILY PO
     Route: 048
     Dates: start: 20071120, end: 20080228
  2. LYRICA [Suspect]
     Indication: NEURALGIA
     Dosage: 2 DAILY PO
     Route: 048
     Dates: start: 20071120, end: 20080228

REACTIONS (1)
  - WEIGHT INCREASED [None]
